FAERS Safety Report 17685899 (Version 2)
Quarter: 2021Q1

REPORT INFORMATION
  Report Type: Spontaneous
  Country: US (occurrence: US)
  Receive Date: 20200420
  Receipt Date: 20210107
  Transmission Date: 20210419
  Serious: Yes (Other)
  Sender: FDA-Public Use
  Company Number: US-ASTRAZENECA-2020SE50481

PATIENT
  Age: 44 Year
  Sex: Female

DRUGS (13)
  1. PROTONIX [Suspect]
     Active Substance: PANTOPRAZOLE SODIUM
     Indication: GASTROOESOPHAGEAL REFLUX DISEASE
     Dosage: GENERIC, DAILY
     Route: 065
  2. PRILOSEC [Suspect]
     Active Substance: OMEPRAZOLE MAGNESIUM
     Indication: GASTROOESOPHAGEAL REFLUX DISEASE
     Dosage: GENERIC
     Route: 065
  3. NORTRIPTYLINE [Concomitant]
     Active Substance: NORTRIPTYLINE
  4. NEXIUM [Suspect]
     Active Substance: ESOMEPRAZOLE MAGNESIUM
     Route: 048
     Dates: start: 200001, end: 201612
  5. PRILOSEC [Suspect]
     Active Substance: OMEPRAZOLE MAGNESIUM
     Indication: GASTROOESOPHAGEAL REFLUX DISEASE
     Route: 048
     Dates: start: 200001, end: 201612
  6. PREVACID [Suspect]
     Active Substance: LANSOPRAZOLE
     Route: 065
     Dates: start: 200001, end: 201612
  7. DIAZEPAM. [Concomitant]
     Active Substance: DIAZEPAM
  8. ATORVASTATIN [Concomitant]
     Active Substance: ATORVASTATIN
  9. MONTELUKAST [Concomitant]
     Active Substance: MONTELUKAST SODIUM
  10. GABAPENTIN. [Concomitant]
     Active Substance: GABAPENTIN
  11. PROTONIX [Suspect]
     Active Substance: PANTOPRAZOLE SODIUM
     Indication: GASTROOESOPHAGEAL REFLUX DISEASE
     Route: 065
     Dates: start: 200001, end: 201612
  12. MORPHINE [Concomitant]
     Active Substance: MORPHINE
     Indication: PAIN
  13. BACLOFEN. [Concomitant]
     Active Substance: BACLOFEN

REACTIONS (4)
  - Renal failure [Not Recovered/Not Resolved]
  - Anxiety [Unknown]
  - Chronic kidney disease [Unknown]
  - Acute kidney injury [Unknown]

NARRATIVE: CASE EVENT DATE: 2013
